FAERS Safety Report 4433870-1 (Version None)
Quarter: 2004Q3

REPORT INFORMATION
  Report Type: 
  Country: None (occurrence: None)
  Receive Date: 20040826
  Receipt Date: 20040805
  Transmission Date: 20050211
  Serious: Yes (Hospitalization)
  Sender: FDA-Public Use
  Company Number: JP-GLAXOSMITHKLINE-B0341996A

PATIENT
  Age: 72 Year
  Sex: Male
  Weight: 53 kg

DRUGS (3)
  1. VALTREX [Suspect]
     Indication: HERPES ZOSTER
     Dosage: 500MG SEE DOSAGE TEXT
     Route: 048
     Dates: start: 20040617, end: 20040624
  2. ARASENA-A [Concomitant]
     Indication: HERPES ZOSTER
     Dosage: 4G PER DAY
     Route: 061
     Dates: start: 20040617, end: 20040709
  3. INSULIN [Concomitant]
     Indication: DIABETES MELLITUS
     Dosage: 20IU PER DAY
     Dates: start: 19740101

REACTIONS (5)
  - ABDOMINAL PAIN UPPER [None]
  - ANOREXIA [None]
  - DEHYDRATION [None]
  - GASTRITIS [None]
  - VOMITING [None]
